FAERS Safety Report 8027320-6 (Version None)
Quarter: 2012Q1

REPORT INFORMATION
  Report Type: 
  Country: None (occurrence: None)
  Receive Date: 20120106
  Receipt Date: 20111229
  Transmission Date: 20120608
  Serious: Yes (Hospitalization, Other)
  Sender: FDA-Public Use
  Company Number: BR-BRISTOL-MYERS SQUIBB COMPANY-16325102

PATIENT
  Age: 75 Year
  Sex: Female
  Weight: 72 kg

DRUGS (6)
  1. WARFARIN SODIUM [Suspect]
  2. ATENOLOL [Concomitant]
  3. ZETIA [Concomitant]
  4. PRAVACHOL [Suspect]
     Indication: LOW DENSITY LIPOPROTEIN INCREASED
     Dosage: DOSAGE OF 2 TABLETS OF 20 MG PER DAY VIA ORAL (40 MG/DAY). MORE THAN 3 MONTHS AGO
     Route: 048
     Dates: start: 20110101
  5. AMIODARONE HYDROCHLORIDE [Concomitant]
  6. ENALAPRIL MALEATE [Concomitant]

REACTIONS (2)
  - ARRHYTHMIA [None]
  - HAEMATURIA [None]
